FAERS Safety Report 12564906 (Version 1)
Quarter: 2016Q3

REPORT INFORMATION
  Report Type: Spontaneous
  Country: US (occurrence: None)
  Receive Date: 20160715
  Receipt Date: 20160715
  Transmission Date: 20161109
  Serious: Yes (Hospitalization)
  Sender: FDA-Public Use
  Company Number: None

PATIENT
  Sex: Male

DRUGS (1)
  1. METFORMIN [Suspect]
     Active Substance: METFORMIN HYDROCHLORIDE

REACTIONS (8)
  - Pneumonia [None]
  - Cognitive disorder [None]
  - Renal failure [None]
  - Physical disability [None]
  - Food poisoning [None]
  - Ketoacidosis [None]
  - Dehydration [None]
  - Unresponsive to stimuli [None]
